FAERS Safety Report 6556529-3 (Version None)
Quarter: 2010Q1

REPORT INFORMATION
  Report Type: 
  Country: None (occurrence: None)
  Receive Date: 20100128
  Receipt Date: 20100119
  Transmission Date: 20100710
  Serious: Yes (Death, Life-Threatening, Hospitalization)
  Sender: FDA-Public Use
  Company Number: JP-PFIZER INC-2009299961

PATIENT
  Age: 56 Year
  Sex: Male
  Weight: 47.5 kg

DRUGS (12)
  1. SUNITINIB MALATE [Suspect]
     Indication: RENAL CELL CARCINOMA
     Dosage: 37.5 MG, DAILY
     Route: 048
     Dates: start: 20091020, end: 20091101
  2. LAFUTIDINE [Concomitant]
     Route: 048
     Dates: end: 20091113
  3. ARTIST [Concomitant]
     Route: 048
     Dates: end: 20091113
  4. PANALDINE [Concomitant]
     Route: 048
     Dates: end: 20091113
  5. EPADEL [Concomitant]
     Route: 048
     Dates: end: 20091113
  6. GANATON [Concomitant]
     Route: 048
     Dates: end: 20091113
  7. PANTOSIN [Concomitant]
     Route: 048
     Dates: end: 20091113
  8. LANIRAPID [Concomitant]
     Route: 048
     Dates: end: 20091113
  9. PURSENNID [Concomitant]
     Route: 048
     Dates: end: 20091113
  10. ALOSENN [Concomitant]
     Route: 048
     Dates: end: 20091113
  11. EURODIN [Concomitant]
     Route: 048
     Dates: end: 20091113
  12. GASTER [Concomitant]
     Route: 048
     Dates: start: 20091024, end: 20091113

REACTIONS (3)
  - CIRCULATORY COLLAPSE [None]
  - HYPOTHYROIDISM [None]
  - PLATELET COUNT DECREASED [None]
